FAERS Safety Report 11983609 (Version 1)
Quarter: 2016Q1

REPORT INFORMATION
  Report Type: Spontaneous
  Country: US (occurrence: US)
  Receive Date: 20160201
  Receipt Date: 20160201
  Transmission Date: 20160526
  Serious: No
  Sender: FDA-Public Use
  Company Number: US-ASTRAZENECA-2016SE07670

PATIENT
  Age: 27030 Day
  Sex: Female

DRUGS (7)
  1. IRESSA [Suspect]
     Active Substance: GEFITINIB
     Indication: LUNG CARCINOMA CELL TYPE UNSPECIFIED STAGE I
     Route: 048
     Dates: start: 20160105
  2. NORVAST [Concomitant]
     Route: 048
  3. METOPROLOL TARTRATE. [Concomitant]
     Active Substance: METOPROLOL TARTRATE
     Route: 048
  4. DIGOXIN. [Concomitant]
     Active Substance: DIGOXIN
     Route: 048
  5. ATORVASTATIN [Concomitant]
     Active Substance: ATORVASTATIN
  6. DIPHENOXYLATE [Concomitant]
     Active Substance: DIPHENOXYLATE
     Route: 048
  7. LORAZEPAN [Concomitant]
     Active Substance: LORAZEPAM
     Route: 048

REACTIONS (4)
  - Hair growth abnormal [Unknown]
  - Diarrhoea [Recovering/Resolving]
  - Rash [Unknown]
  - Dry skin [Unknown]

NARRATIVE: CASE EVENT DATE: 20160119
